FAERS Safety Report 18925423 (Version 2)
Quarter: 2021Q3

REPORT INFORMATION
  Report Type: Other
  Country: CA (occurrence: CA)
  Receive Date: 20210223
  Receipt Date: 20210727
  Transmission Date: 20211014
  Serious: Yes (Other)
  Sender: FDA-Public Use
  Company Number: CA-CELLTRION INC.-2021CA002180

PATIENT

DRUGS (8)
  1. DHA [Concomitant]
     Active Substance: DIETARY SUPPLEMENT
     Dosage: UNK
  2. TYLENOL [Concomitant]
     Active Substance: ACETAMINOPHEN
     Dosage: 650.0 MG
     Route: 048
  3. RITUXIMAB (UNKNOWN) [Suspect]
     Active Substance: RITUXIMAB
     Indication: MYELITIS TRANSVERSE
     Dosage: 1000.0 MG, 1 EVERY 15 DAYS
     Route: 042
  4. ADVIL [Concomitant]
     Active Substance: IBUPROFEN
     Dosage: UNK
  5. METHYLPREDNISOLONE SODIUM SUCCINATE. [Concomitant]
     Active Substance: METHYLPREDNISOLONE SODIUM SUCCINATE
     Indication: PREMEDICATION
     Dosage: 100.0 MG
     Route: 042
  6. BENADRYL [Concomitant]
     Active Substance: DIPHENHYDRAMINE HYDROCHLORIDE
     Indication: PREMEDICATION
     Dosage: 50.0 MG
     Route: 048
  7. PREDNISONE. [Concomitant]
     Active Substance: PREDNISONE
     Dosage: UNK
  8. DESICCATED THYROID [Concomitant]
     Dosage: UNK

REACTIONS (10)
  - Blood pressure diastolic abnormal [Recovered/Resolved]
  - Off label use [Recovered/Resolved]
  - Off label use [Unknown]
  - Blood pressure increased [Recovered/Resolved]
  - Infusion related reaction [Recovered/Resolved]
  - Intentional product use issue [Recovered/Resolved]
  - Localised infection [Recovered/Resolved]
  - Blood pressure systolic increased [Recovered/Resolved]
  - Hemiplegia [Recovered/Resolved]
  - Weight increased [Recovered/Resolved]
